FAERS Safety Report 7751043-1 (Version None)
Quarter: 2011Q3

REPORT INFORMATION
  Report Type: 
  Country: None (occurrence: None)
  Receive Date: 20110914
  Receipt Date: 20110325
  Transmission Date: 20111222
  Serious: Yes (Other)
  Sender: FDA-Public Use
  Company Number: FR-BAYER-2011-020397

PATIENT
  Age: 46 Year
  Sex: Female
  Weight: 53 kg

DRUGS (1)
  1. MIRENA [Suspect]
     Dosage: 20 ?G, CONT
     Route: 015
     Dates: start: 20060101, end: 20110302

REACTIONS (4)
  - UTERINE LEIOMYOMA [None]
  - FIBROMA [None]
  - MENORRHAGIA [None]
  - OLIGOMENORRHOEA [None]
